FAERS Safety Report 12914095 (Version 1)
Quarter: 2016Q4

REPORT INFORMATION
  Report Type: Spontaneous
  Country: ES (occurrence: ES)
  Receive Date: 20161105
  Receipt Date: 20161105
  Transmission Date: 20170207
  Serious: Yes (Hospitalization, Other)
  Sender: FDA-Public Use
  Company Number: ES-ASTRAZENECA-2016SF14312

PATIENT
  Age: 56 Year
  Sex: Male

DRUGS (6)
  1. AMLODIPINE [Suspect]
     Active Substance: AMLODIPINE BESYLATE
     Indication: HYPERTENSION
     Dosage: 10 MG DAILY, LATENCY: 47 MONTHS
     Route: 048
     Dates: start: 20120817, end: 20161008
  2. BELOKEN RETARD [Suspect]
     Active Substance: METOPROLOL TARTRATE
     Indication: HYPERTENSION
     Dosage: 95 MG DAILY, (30 TABLETS) LATENCY: 35 MONTHS
     Route: 048
     Dates: start: 20130801, end: 20160801
  3. GLICAZIDE [Suspect]
     Active Substance: GLICLAZIDE
     Indication: DIABETES MELLITUS
     Dosage: 30 MG DAILY, LATENCY: 1 MONTH
     Route: 048
     Dates: start: 20160601, end: 20161008
  4. TEVETENS PLUS [Suspect]
     Active Substance: EPROSARTAN MESYLATE\HYDROCHLOROTHIAZIDE
     Indication: HYPERTENSION
     Dosage: 600 MG/12.5 MG, 1 DF DAILY, LATENCY: 47 MONTHS
     Route: 048
     Dates: start: 20120817, end: 20161008
  5. METFORMIN [Suspect]
     Active Substance: METFORMIN HYDROCHLORIDE
     Indication: DIABETES MELLITUS
     Dosage: 850 MG THREE TIMES A DAY, LATENCY: 1 MONTH, NON-AZ DRUG
     Route: 048
     Dates: start: 20160601, end: 20161008
  6. GALVUS [Suspect]
     Active Substance: VILDAGLIPTIN
     Indication: DIABETES MELLITUS
     Dosage: 50 MG TWO TIMES A DAY, 28 TABLETS, LATENCY: 1 MONTH
     Route: 048
     Dates: start: 20160630, end: 20161008

REACTIONS (9)
  - Metastases to liver [Unknown]
  - Jaundice [Not Recovered/Not Resolved]
  - Discomfort [Recovered/Resolved]
  - Pancreatic carcinoma [Unknown]
  - Haemangioma of liver [Unknown]
  - Type 2 diabetes mellitus [Not Recovered/Not Resolved]
  - Dizziness [Recovered/Resolved]
  - Decreased appetite [Recovered/Resolved]
  - Nausea [Recovered/Resolved]

NARRATIVE: CASE EVENT DATE: 201606
